FAERS Safety Report 5829288-7 (Version None)
Quarter: 2008Q3

REPORT INFORMATION
  Report Type: 
  Country: None (occurrence: None)
  Receive Date: 20080731
  Receipt Date: 20080711
  Transmission Date: 20090109
  Serious: No
  Sender: FDA-Public Use
  Company Number: US-BOEHRINGER INGELHEIM GMBH, GERMANY-2008-BP-08971BP

PATIENT
  Sex: Male

DRUGS (5)
  1. SPIRIVA [Suspect]
     Indication: EMPHYSEMA
     Route: 055
     Dates: start: 20080201
  2. ATENOLOL [Concomitant]
     Indication: HYPERTENSION
  3. PHENOBARB [Concomitant]
     Indication: CONVULSION
  4. DILANTIN [Concomitant]
     Indication: CONVULSION
  5. GLUCOPHAGE [Concomitant]
     Indication: DIABETES MELLITUS

REACTIONS (2)
  - COUGH [None]
  - DRUG INEFFECTIVE [None]
